FAERS Safety Report 5897770-2 (Version None)
Quarter: 2008Q3

REPORT INFORMATION
  Report Type: 
  Country: None (occurrence: None)
  Receive Date: 20080925
  Receipt Date: 20080917
  Transmission Date: 20090109
  Serious: Yes (Hospitalization, Other)
  Sender: FDA-Public Use
  Company Number: PHHY2008JP13594

PATIENT
  Age: 66 Year
  Sex: Male

DRUGS (13)
  1. NEORAL [Suspect]
     Indication: APLASTIC ANAEMIA
     Dosage: 175 MG/DAY
     Route: 048
  2. NEORAL [Suspect]
     Indication: COLITIS ULCERATIVE
  3. SELBEX [Concomitant]
     Dosage: 150 MG
     Route: 048
  4. PRIMOBOLAN [Concomitant]
     Dosage: 15 MG
     Route: 048
  5. BERIZYM [Concomitant]
     Dosage: 3 G
     Route: 048
  6. ADONA [Concomitant]
     Dosage: 90 MG
     Route: 048
  7. LEVOTHYROXINE SODIUM [Concomitant]
     Dosage: 50 UG
     Route: 048
  8. ZYLORIC [Concomitant]
  9. ARTIST [Concomitant]
     Dosage: 2.5 MG
     Route: 048
  10. LANSOPRAZOLE [Concomitant]
     Route: 048
  11. LASIX [Concomitant]
     Dosage: 40 MG
     Route: 048
  12. MYSLEE [Concomitant]
     Dosage: 5 MG
     Route: 048
  13. FERROMIA [Concomitant]
     Dosage: 100 MG
     Route: 048

REACTIONS (8)
  - BLOOD CREATININE INCREASED [None]
  - BLOOD UREA INCREASED [None]
  - BLOOD URINE PRESENT [None]
  - CREATININE RENAL CLEARANCE DECREASED [None]
  - HYPOTHYROIDISM [None]
  - PANCYTOPENIA [None]
  - RENAL FAILURE CHRONIC [None]
  - RENAL IMPAIRMENT [None]
